FAERS Safety Report 6334511-9 (Version None)
Quarter: 2009Q3

REPORT INFORMATION
  Report Type: 
  Country: None (occurrence: None)
  Receive Date: 20090827
  Receipt Date: 20090812
  Transmission Date: 20100115
  Serious: Yes (Other)
  Sender: FDA-Public Use
  Company Number: AUR-APL-2009-00407

PATIENT
  Age: 48 Year
  Sex: Female

DRUGS (6)
  1. SIMVASTATIN [Suspect]
     Indication: HYPERLIPIDAEMIA
  2. EZETIMIBE [Suspect]
     Indication: HYPERLIPIDAEMIA
  3. FLUVASTATIN [Suspect]
     Indication: HYPERLIPIDAEMIA
  4. LOVASTATIN [Suspect]
     Indication: HYPERLIPIDAEMIA
  5. VYTORIN [Suspect]
     Indication: HYPERLIPIDAEMIA
  6. UBIDECARENONE [Concomitant]

REACTIONS (1)
  - AMYOTROPHIC LATERAL SCLEROSIS [None]
